FAERS Safety Report 8990508 (Version 2)
Quarter: 2013Q1

REPORT INFORMATION
  Report Type: Report from Study
  Country: CA (occurrence: CA)
  Receive Date: 20121228
  Receipt Date: 20130215
  Transmission Date: 20140127
  Serious: Yes (Hospitalization, Other)
  Sender: FDA-Public Use
  Company Number: CA-ROCHE-1172577

PATIENT
  Age: 65 Year
  Sex: Female
  Weight: 52.07 kg

DRUGS (4)
  1. OMALIZUMAB [Suspect]
     Indication: ASTHMA
     Dosage: 300 MG, 1/MONTH
     Route: 058
     Dates: start: 20051007
  2. OMALIZUMAB [Suspect]
     Route: 058
     Dates: start: 20050710
  3. OMALIZUMAB [Suspect]
     Route: 058
     Dates: start: 20060912
  4. OMALIZUMAB [Suspect]
     Route: 065
     Dates: start: 20130206

REACTIONS (18)
  - Tendon rupture [Recovering/Resolving]
  - Asthma [Recovering/Resolving]
  - Cardiac valve replacement complication [Unknown]
  - Cough [Recovering/Resolving]
  - Rhinorrhoea [Recovering/Resolving]
  - Insomnia [Recovering/Resolving]
  - Ear infection [Unknown]
  - Decreased activity [Unknown]
  - Fatigue [Unknown]
  - Headache [Unknown]
  - Malaise [Unknown]
  - Hypersensitivity [Unknown]
  - Productive cough [Unknown]
  - Pulmonary congestion [Unknown]
  - Breath sounds abnormal [Unknown]
  - Throat irritation [Unknown]
  - Pruritus [Unknown]
  - Nasal congestion [Unknown]
